FAERS Safety Report 23107540 (Version 2)
Quarter: 2023Q4

REPORT INFORMATION
  Report Type: Spontaneous
  Country: IT (occurrence: IT)
  Receive Date: 20231026
  Receipt Date: 20231110
  Transmission Date: 20240110
  Serious: Yes (Other)
  Sender: FDA-Public Use
  Company Number: IT-MINISAL02-949727

PATIENT
  Age: 74 Year
  Sex: Female

DRUGS (2)
  1. VORICONAZOLE [Suspect]
     Active Substance: VORICONAZOLE
     Indication: Product used for unknown indication
     Dosage: UNK (ON 7/17/23 THERAPY WITH VORICONAZOLE 6 MG/KG EVERY 12 HOURS P.O. WAS INDICATED. FOR TWO ADMINIS
     Route: 048
     Dates: start: 20230717, end: 20230807
  2. VORICONAZOLE [Suspect]
     Active Substance: VORICONAZOLE
     Indication: Product used for unknown indication
     Dosage: IL 22/08/2023 I MEDICI CONCORDANO DI REINTRODURRE VORICONAZOLO ENDOVENA, 0,9 FL X 2 / DIE E MONITORA
     Route: 042
     Dates: start: 20230823, end: 20230925

REACTIONS (1)
  - Hepatotoxicity [Recovering/Resolving]

NARRATIVE: CASE EVENT DATE: 20230724
